FAERS Safety Report 4503917-2 (Version None)
Quarter: 2004Q4

REPORT INFORMATION
  Report Type: 
  Country: None (occurrence: None)
  Receive Date: 20041115
  Receipt Date: 20041105
  Transmission Date: 20050328
  Serious: Yes (Death)
  Sender: FDA-Public Use
  Company Number: 163-20785-04100677

PATIENT
  Age: 65 Year
  Sex: Male

DRUGS (1)
  1. THALOMID [Suspect]
     Dosage: 200 MG, QD, ORAL
     Route: 048
     Dates: start: 20040803, end: 20040101

REACTIONS (1)
  - MANTLE CELL LYMPHOMA [None]
